FAERS Safety Report 7781481-2 (Version None)
Quarter: 2011Q3

REPORT INFORMATION
  Report Type: 
  Country: None (occurrence: None)
  Receive Date: 20110927
  Receipt Date: 20110506
  Transmission Date: 20111222
  Serious: No
  Sender: FDA-Public Use
  Company Number: US-BAYER-2011-041080

PATIENT
  Age: 71 Year
  Sex: Female
  Weight: 63 kg

DRUGS (3)
  1. ALEVE (CAPLET) [Suspect]
     Indication: RHEUMATOID ARTHRITIS
     Dosage: 2 U, BID
     Route: 048
     Dates: start: 20110401
  2. CORTICOSTEROIDS [Concomitant]
  3. ACETYLSALICYLIC ACID SRT [Concomitant]
     Dosage: HALF TABLET DAILY

REACTIONS (1)
  - NO ADVERSE EVENT [None]
